FAERS Safety Report 21039648 (Version 1)
Quarter: 2022Q3

REPORT INFORMATION
  Report Type: Spontaneous
  Country: US (occurrence: US)
  Receive Date: 20220704
  Receipt Date: 20220704
  Transmission Date: 20221027
  Serious: No
  Sender: FDA-Public Use
  Company Number: US-BRISTOL-MYERS SQUIBB COMPANY-2022-067970

PATIENT
  Age: 76 Year
  Sex: Female

DRUGS (1)
  1. REVLIMID [Suspect]
     Active Substance: LENALIDOMIDE
     Indication: Plasma cell myeloma
     Dosage: FREQUENCY: FOR 21 DAYS ON THEN 7 DAYS OFF
     Route: 048

REACTIONS (4)
  - White blood cell disorder [Unknown]
  - Platelet count abnormal [Unknown]
  - Protein total decreased [Unknown]
  - Blood potassium decreased [Unknown]
